FAERS Safety Report 24340460 (Version 2)
Quarter: 2024Q3

REPORT INFORMATION
  Report Type: Spontaneous
  Country: GB (occurrence: CH)
  Receive Date: 20240919
  Receipt Date: 20240924
  Transmission Date: 20241017
  Serious: Yes (Hospitalization)
  Sender: SUNOVION
  Company Number: CH-Accord-446481

PATIENT

DRUGS (7)
  1. RELUGOLIX [Suspect]
     Active Substance: RELUGOLIX
     Indication: Prostate cancer
     Dosage: 120 MG
     Route: 065
     Dates: start: 20240714, end: 20240814
  2. ASPIRIN [Concomitant]
     Active Substance: ASPIRIN
     Dosage: STRENGTH: 100 MG, 1X/D
     Route: 065
  3. LERCANIDIPINE [Concomitant]
     Active Substance: LERCANIDIPINE
     Dosage: STRENGTH: 10 MG, 1/2 PILL 1 TIME PER DAY
     Route: 065
  4. TAMBOCOR [Concomitant]
     Active Substance: FLECAINIDE ACETATE
     Dosage: STRENGTH: 100 MG, 1/2 PILL 1 TIME PER DAY
     Route: 065
  5. ZOLPIDEM [Concomitant]
     Active Substance: ZOLPIDEM TARTRATE
     Dosage: STRENGTH: 20 MG, ONE PILL AT EVENING
     Route: 065
  6. BROMAZEPAM [Concomitant]
     Active Substance: BROMAZEPAM
     Indication: Respiratory symptom
     Dosage: EN R
     Route: 065
  7. Calcimagon D3 Forte [Concomitant]
     Dosage: ONE PILL PER DAY
     Route: 065

REACTIONS (4)
  - Dysaesthesia [Recovered/Resolved]
  - Burning sensation [Recovered/Resolved]
  - Hot flush [Recovering/Resolving]
  - Drug intolerance [Unknown]
